FAERS Safety Report 8520167-3 (Version None)
Quarter: 2012Q3

REPORT INFORMATION
  Report Type: 
  Country: None (occurrence: None)
  Receive Date: 20120705
  Receipt Date: 20120626
  Transmission Date: 20120928
  Serious: Yes (Life-Threatening, Hospitalization, Other)
  Sender: FDA-Public Use
  Company Number: 2012SP036028

PATIENT
  Age: 48 Year
  Sex: Male
  Weight: 48 kg

DRUGS (14)
  1. AMITRIPTYLINE HCL [Concomitant]
  2. ROCURONIUM BROMIDE [Suspect]
     Indication: PRODUCT USED FOR UNKNOWN INDICATION
     Dosage: IV
     Route: 042
     Dates: start: 20120612, end: 20120612
  3. FENTANYL [Concomitant]
  4. MIRTAZAPINE [Concomitant]
  5. ONDANSETRON [Concomitant]
  6. SEVOFLURANE [Concomitant]
  7. OXYGEN [Concomitant]
  8. AVASTIN [Concomitant]
  9. NITROUS OXIDE [Concomitant]
  10. ACETAMINOPHEN [Concomitant]
  11. PROPOFOL [Concomitant]
  12. GLYCERINE [Concomitant]
  13. METOCLOPRAMIDE [Concomitant]
  14. OXYCODONE HCL [Concomitant]

REACTIONS (3)
  - PULSELESS ELECTRICAL ACTIVITY [None]
  - ANAPHYLACTIC REACTION [None]
  - CARDIAC ARREST [None]
